FAERS Safety Report 18677085 (Version 1)
Quarter: 2020Q4

REPORT INFORMATION
  Report Type: Spontaneous
  Country: JP (occurrence: JP)
  Receive Date: 20201229
  Receipt Date: 20201229
  Transmission Date: 20210114
  Serious: Yes (Hospitalization)
  Sender: FDA-Public Use
  Company Number: JP-ALLERGAN-2049791US

PATIENT
  Sex: Male

DRUGS (3)
  1. SILODOSIN - BP [Suspect]
     Active Substance: SILODOSIN
     Indication: BENIGN PROSTATIC HYPERPLASIA
     Dosage: 4 MG, BID
     Route: 048
  2. AVOLVE [Concomitant]
     Active Substance: DUTASTERIDE
     Route: 048
  3. SILODOSIN - BP [Suspect]
     Active Substance: SILODOSIN
     Indication: DYSURIA
     Dosage: UNK
     Route: 048

REACTIONS (1)
  - Epilepsy [Recovered/Resolved]
